FAERS Safety Report 7319906-9 (Version None)
Quarter: 2011Q1

REPORT INFORMATION
  Report Type: 
  Country: None (occurrence: None)
  Receive Date: 20110228
  Receipt Date: 20101129
  Transmission Date: 20110831
  Serious: No
  Sender: FDA-Public Use
  Company Number: A0896727A

PATIENT
  Age: 67 Year
  Sex: Male

DRUGS (4)
  1. FOSAMAX [Concomitant]
  2. LAMICTAL [Suspect]
  3. LAMICTAL [Suspect]
     Route: 048
     Dates: start: 20080201, end: 20091001
  4. ACTONEL [Suspect]

REACTIONS (7)
  - HYPERHIDROSIS [None]
  - BURNING SENSATION [None]
  - LOCAL SWELLING [None]
  - OVERDOSE [None]
  - CHEST PAIN [None]
  - PAROSMIA [None]
  - PRURITUS [None]
